FAERS Safety Report 7027553-1 (Version None)
Quarter: 2010Q4

REPORT INFORMATION
  Report Type: 
  Country: None (occurrence: None)
  Receive Date: 20101004
  Receipt Date: 20100930
  Transmission Date: 20110411
  Serious: Yes (Death)
  Sender: FDA-Public Use
  Company Number: UG-ABBOTT-10P-165-0674666-00

PATIENT
  Sex: Female

DRUGS (3)
  1. ALUVIA TABLETS [Suspect]
     Indication: PRODUCT USED FOR UNKNOWN INDICATION
     Dates: start: 20100511, end: 20100925
  2. RALTEGRAVIR [Concomitant]
     Indication: PRODUCT USED FOR UNKNOWN INDICATION
     Dates: start: 20100511, end: 20100925
  3. COTRIM [Concomitant]
     Indication: PRODUCT USED FOR UNKNOWN INDICATION
     Dates: start: 20060425, end: 20100925

REACTIONS (15)
  - ABDOMINAL PAIN UPPER [None]
  - ARRHYTHMIA [None]
  - BEDRIDDEN [None]
  - CANDIDIASIS [None]
  - DEHYDRATION [None]
  - DIARRHOEA [None]
  - DYSPHAGIA [None]
  - GASTROENTERITIS [None]
  - GASTROINTESTINAL HAEMORRHAGE [None]
  - ODYNOPHAGIA [None]
  - ORAL HERPES [None]
  - PALPITATIONS [None]
  - PRURITUS [None]
  - RASH PAPULAR [None]
  - VOMITING [None]
